FAERS Safety Report 13719240 (Version 4)
Quarter: 2017Q3

REPORT INFORMATION
  Report Type: Spontaneous
  Country: US (occurrence: US)
  Receive Date: 20170705
  Receipt Date: 20170920
  Transmission Date: 20171127
  Serious: No
  Sender: FDA-Public Use
  Company Number: US-GE HEALTHCARE LIFE SCIENCES-2017CSU001893

PATIENT
  Sex: Female

DRUGS (10)
  1. DATSCAN [Suspect]
     Active Substance: IODINE\IOFLUPANE I-123
     Indication: PARKINSON^S DISEASE
     Dosage: UNK, SINGLE
     Route: 065
     Dates: start: 20170621, end: 20170621
  2. ACETAMINOPHEN AND CODEINE [Concomitant]
     Active Substance: ACETAMINOPHEN\CODEINE PHOSPHATE
  3. METOPROLOL SUCCINATE. [Concomitant]
     Active Substance: METOPROLOL SUCCINATE
  4. PROVIGIL [Concomitant]
     Active Substance: MODAFINIL
  5. ASPIRIN                            /00002701/ [Concomitant]
     Active Substance: ASPIRIN
  6. IBANDRONATE [Concomitant]
     Active Substance: IBANDRONATE SODIUM
  7. ZETIA [Concomitant]
     Active Substance: EZETIMIBE
  8. AMOXICILLIN. [Concomitant]
     Active Substance: AMOXICILLIN
  9. GABAPENTIN. [Concomitant]
     Active Substance: GABAPENTIN
  10. MODAFINIL. [Concomitant]
     Active Substance: MODAFINIL

REACTIONS (2)
  - No adverse event [Recovered/Resolved]
  - Radioisotope scan abnormal [Recovered/Resolved]
